FAERS Safety Report 9608528 (Version 1)
Quarter: 2013Q4

REPORT INFORMATION
  Report Type: Report from Study
  Country: LB (occurrence: LB)
  Receive Date: 20131009
  Receipt Date: 20131009
  Transmission Date: 20140711
  Serious: Yes (Other)
  Sender: FDA-Public Use
  Company Number: LB-SA-2013SA099788

PATIENT
  Age: 45 Year
  Sex: Male

DRUGS (5)
  1. LANTUS SOLOSTAR [Suspect]
     Indication: DIABETES MELLITUS
     Dosage: DOSE:12 UNIT(S)
     Route: 058
     Dates: start: 2012
  2. AMARYL [Suspect]
     Indication: DIABETES MELLITUS
     Route: 048
  3. GLUCOPHAGE [Suspect]
     Indication: DIABETES MELLITUS
     Route: 048
  4. ATACAND [Suspect]
     Indication: PRODUCT USED FOR UNKNOWN INDICATION
     Route: 048
  5. SOLOSTAR [Concomitant]
     Indication: DEVICE THERAPY
     Dates: start: 2012

REACTIONS (2)
  - Hypertension [Recovering/Resolving]
  - Eye haemorrhage [Recovering/Resolving]
